FAERS Safety Report 6440884-9 (Version None)
Quarter: 2009Q4

REPORT INFORMATION
  Report Type: 
  Country: None (occurrence: None)
  Receive Date: 20091116
  Receipt Date: 20091102
  Transmission Date: 20100525
  Serious: Yes (Hospitalization, Other)
  Sender: FDA-Public Use
  Company Number: PHEH2009US14267

PATIENT
  Sex: Male
  Weight: 64.853 kg

DRUGS (1)
  1. EXJADE [Suspect]
     Indication: IRON OVERLOAD
     Dosage: 250 MG, 5QD
     Route: 048
     Dates: start: 20090422, end: 20091024

REACTIONS (1)
  - PAIN [None]
